FAERS Safety Report 18799318 (Version 1)
Quarter: 2021Q1

REPORT INFORMATION
  Report Type: Other
  Country: US (occurrence: US)
  Receive Date: 20210128
  Receipt Date: 20210128
  Transmission Date: 20210419
  Serious: Yes (Life-Threatening, Hospitalization, Other)
  Sender: FDA-Public Use
  Company Number: US-EYWA PHARMA INC.-2105963

PATIENT
  Age: 59 Year
  Sex: Male

DRUGS (1)
  1. BACLOFEN. [Suspect]
     Active Substance: BACLOFEN
     Indication: MUSCLE RELAXANT THERAPY
     Route: 037

REACTIONS (5)
  - Toxicity to various agents [Unknown]
  - Status epilepticus [Recovering/Resolving]
  - Respiratory failure [Unknown]
  - Hypotension [Unknown]
  - Encephalopathy [Recovering/Resolving]
